FAERS Safety Report 7888621-5 (Version None)
Quarter: 2011Q4

REPORT INFORMATION
  Report Type: 
  Country: None (occurrence: None)
  Receive Date: 20111103
  Receipt Date: 20111101
  Transmission Date: 20120403
  Serious: Yes (Disabling)
  Sender: FDA-Public Use
  Company Number: NL-ROCHE-1008761

PATIENT
  Age: 63 Year
  Sex: Male
  Weight: 77 kg

DRUGS (4)
  1. PRAVASTATIN SODIUM [Concomitant]
     Route: 048
     Dates: start: 20100101
  2. METFORMIN HCL [Concomitant]
     Route: 048
     Dates: start: 20090101
  3. XELODA [Suspect]
     Indication: COLON CANCER
     Route: 048
     Dates: start: 20100901
  4. OXALIPLATIN [Suspect]
     Indication: COLON CANCER
     Route: 042
     Dates: start: 20100901

REACTIONS (2)
  - DISTURBANCE IN ATTENTION [None]
  - NEUROPATHY PERIPHERAL [None]
